FAERS Safety Report 18245491 (Version 1)
Quarter: 2020Q3

REPORT INFORMATION
  Report Type: Spontaneous
  Country: FR (occurrence: FR)
  Receive Date: 20200909
  Receipt Date: 20200909
  Transmission Date: 20201103
  Serious: Yes (Hospitalization, Congenital Anomaly, Other)
  Sender: FDA-Public Use
  Company Number: FR-AUROBINDO-AUR-APL-2020-046737

PATIENT
  Age: 39 Week
  Sex: Male

DRUGS (2)
  1. CLOBAZAM. [Suspect]
     Active Substance: CLOBAZAM
     Indication: FOETAL EXPOSURE DURING PREGNANCY
     Dosage: 2 DOSAGE FORM
     Route: 064
  2. VALPROIC ACID. [Suspect]
     Active Substance: VALPROIC ACID
     Indication: FOETAL EXPOSURE DURING PREGNANCY
     Dosage: 1000 MILLIGRAM, ONCE A DAY
     Route: 064
     Dates: start: 20090523, end: 20100219

REACTIONS (26)
  - Dysmorphism [Unknown]
  - Limb malformation [Unknown]
  - Amblyopia [Unknown]
  - Cardiomyopathy [Unknown]
  - Fine motor delay [Unknown]
  - Inguinal hernia [Unknown]
  - Dacryostenosis congenital [Unknown]
  - Visual impairment [Unknown]
  - Selective eating disorder [Unknown]
  - Cryptorchism [Unknown]
  - Gastrooesophageal reflux disease [Unknown]
  - Psychomotor retardation [Unknown]
  - Nasal disorder [Unknown]
  - Foetal exposure during pregnancy [Unknown]
  - Motor developmental delay [Unknown]
  - Heart disease congenital [Unknown]
  - Hydronephrosis [Unknown]
  - Oropharyngeal discomfort [Unknown]
  - Eating disorder [Unknown]
  - Language disorder [Unknown]
  - Congenital pyelocaliectasis [Unknown]
  - Hypotonia [Unknown]
  - Gross motor delay [Unknown]
  - Cognitive disorder [Unknown]
  - Anisometropia [Unknown]
  - IIIrd nerve disorder [Unknown]

NARRATIVE: CASE EVENT DATE: 20100219
